FAERS Safety Report 12282513 (Version 2)
Quarter: 2019Q3

REPORT INFORMATION
  Report Type: Spontaneous
  Country: US (occurrence: US)
  Receive Date: 20160419
  Receipt Date: 20190719
  Transmission Date: 20191004
  Serious: Yes (Death)
  Sender: FDA-Public Use
  Company Number: US-ASTRAZENECA-2016SE38683

PATIENT
  Age: 26853 Day
  Sex: Female
  Weight: 108.9 kg

DRUGS (12)
  1. METFORMIN [Concomitant]
     Active Substance: METFORMIN HYDROCHLORIDE
  2. ARIMIDEX [Concomitant]
     Active Substance: ANASTROZOLE
  3. METFORMIN [Concomitant]
     Active Substance: METFORMIN HYDROCHLORIDE
  4. WARFARIN [Concomitant]
     Active Substance: WARFARIN
  5. LANTUS [Concomitant]
     Active Substance: INSULIN GLARGINE
  6. LIPITOR [Concomitant]
     Active Substance: ATORVASTATIN CALCIUM
  7. ASPIRIN. [Concomitant]
     Active Substance: ASPIRIN
  8. VITAMIN D3 [Concomitant]
     Active Substance: CHOLECALCIFEROL
  9. LASIX [Concomitant]
     Active Substance: FUROSEMIDE
  10. NEURONTIN [Concomitant]
     Active Substance: GABAPENTIN
  11. VITAMIN C [Concomitant]
     Active Substance: ASCORBIC ACID
  12. BYETTA [Suspect]
     Active Substance: EXENATIDE
     Indication: TYPE 2 DIABETES MELLITUS
     Dosage: 10 MCG TWICE DAILY
     Route: 065
     Dates: start: 20060202, end: 201212

REACTIONS (2)
  - Gastrointestinal haemorrhage [Fatal]
  - Pancreatic carcinoma [Fatal]

NARRATIVE: CASE EVENT DATE: 20121102
